FAERS Safety Report 9596558 (Version 1)
Quarter: 2013Q4

REPORT INFORMATION
  Report Type: Spontaneous
  Country: KR (occurrence: KR)
  Receive Date: 20131004
  Receipt Date: 20131004
  Transmission Date: 20140711
  Serious: Yes (Other)
  Sender: FDA-Public Use
  Company Number: PHHY2013KR110845

PATIENT
  Sex: Female

DRUGS (4)
  1. DICLOFENAC [Suspect]
  2. ACECLOFENAC [Suspect]
  3. ASPIRIN [Concomitant]
  4. NSAID^S [Concomitant]

REACTIONS (1)
  - Anaphylactic reaction [Unknown]
